FAERS Safety Report 11032538 (Version 4)
Quarter: 2015Q3

REPORT INFORMATION
  Report Type: Spontaneous
  Country: JP (occurrence: JP)
  Receive Date: 20150415
  Receipt Date: 20150915
  Transmission Date: 20151125
  Serious: Yes (Other)
  Sender: FDA-Public Use
  Company Number: JP-ASTELLAS-2015JP007917

PATIENT
  Age: 71 Year
  Sex: Female
  Weight: 39 kg

DRUGS (10)
  1. MYSLEE [Concomitant]
     Active Substance: ZOLPIDEM TARTRATE
     Indication: INSOMNIA
     Route: 048
     Dates: start: 20140628
  2. BETANIS [Suspect]
     Active Substance: MIRABEGRON
     Indication: NOCTURIA
     Route: 048
     Dates: start: 20140917, end: 20141001
  3. EPADEL-S [Concomitant]
     Active Substance: ETHYL ICOSAPENTATE\ICOSAPENT
     Indication: HYPERLIPIDAEMIA
     Route: 048
     Dates: start: 20100802
  4. ATORVASTATIN [Concomitant]
     Active Substance: ATORVASTATIN
     Indication: HYPERLIPIDAEMIA
     Route: 048
     Dates: start: 20140403
  5. CELECOX [Suspect]
     Active Substance: CELECOXIB
     Indication: TENOSYNOVITIS
     Dosage: UNK UNK, UNKNOWN FREQ.
     Route: 048
     Dates: start: 201409, end: 201409
  6. BUFFERIN [Concomitant]
     Active Substance: ASPIRIN
     Indication: CAROTID ARTERY STENOSIS
     Route: 048
     Dates: start: 20090824
  7. CEREKINON [Concomitant]
     Active Substance: TRIMEBUTINE
     Indication: ENTEROCOLITIS BACTERIAL
     Dosage: UNK UNK, UNKNOWN FREQ.
     Route: 065
     Dates: start: 20140922
  8. DAIKENCHUTO [Concomitant]
     Active Substance: HERBALS
     Indication: ABDOMINAL DISCOMFORT
     Dosage: UNK UNK, UNKNOWN FREQ.
     Route: 065
     Dates: start: 20140929
  9. FOSMICIN                           /00552502/ [Concomitant]
     Indication: ENTEROCOLITIS BACTERIAL
     Dosage: UNK UNK, UNKNOWN FREQ.
     Route: 065
     Dates: start: 20140922
  10. DAIKENCHUTO [Concomitant]
     Active Substance: HERBALS
     Indication: DECREASED APPETITE

REACTIONS (4)
  - Abdominal pain [Recovered/Resolved]
  - Diarrhoea [Recovered/Resolved]
  - Colitis ischaemic [Recovered/Resolved]
  - Decreased appetite [Recovered/Resolved]

NARRATIVE: CASE EVENT DATE: 20140919
